FAERS Safety Report 9395824 (Version 2)
Quarter: 2013Q4

REPORT INFORMATION
  Report Type: Spontaneous
  Country: GB (occurrence: GB)
  Receive Date: 20130711
  Receipt Date: 20131210
  Transmission Date: 20140711
  Serious: Yes (Hospitalization)
  Sender: FDA-Public Use
  Company Number: GB-WATSON-2013-12071

PATIENT
  Age: 20 Year
  Sex: Female
  Weight: 60 kg

DRUGS (3)
  1. SERTRALINE HYDROCHLORIDE (UNKNOWN) [Suspect]
     Indication: FATIGUE
     Dosage: 100 MG, UNKNOWN
     Route: 048
     Dates: start: 20121027, end: 20121029
  2. SERTRALINE HYDROCHLORIDE (UNKNOWN) [Suspect]
     Dosage: 50 MG, UNKNOWN
     Route: 048
     Dates: start: 20121026, end: 20121026
  3. SERTRALINE HYDROCHLORIDE (UNKNOWN) [Suspect]
     Dosage: 25 MG, UNKNOWN
     Route: 048
     Dates: start: 20121102, end: 20121102

REACTIONS (30)
  - Serotonin syndrome [Recovered/Resolved with Sequelae]
  - Malaise [Unknown]
  - Ocular hyperaemia [Unknown]
  - Dysgeusia [Unknown]
  - Feeling abnormal [Unknown]
  - Pupillary disorder [Unknown]
  - Tremor [Unknown]
  - Diarrhoea [Unknown]
  - Constipation [Unknown]
  - Feeling cold [Unknown]
  - Hyperhidrosis [Unknown]
  - Dysuria [Unknown]
  - Muscle spasms [Unknown]
  - Palpitations [Unknown]
  - Dyskinesia [Unknown]
  - Headache [Unknown]
  - Hypoaesthesia [Unknown]
  - Dizziness [Unknown]
  - Flushing [Unknown]
  - Feeling abnormal [Unknown]
  - Emotional disorder [Unknown]
  - Photophobia [Unknown]
  - Insomnia [Unknown]
  - Abnormal dreams [Unknown]
  - Menorrhagia [Unknown]
  - Cognitive disorder [Unknown]
  - Disturbance in attention [Unknown]
  - Decreased appetite [Unknown]
  - Hunger [Unknown]
  - Fatigue [Unknown]
